FAERS Safety Report 5261784-6 (Version None)
Quarter: 2007Q1

REPORT INFORMATION
  Report Type: 
  Country: None (occurrence: None)
  Receive Date: 20070308
  Receipt Date: 20070221
  Transmission Date: 20070707
  Serious: Yes (Hospitalization)
  Sender: FDA-Public Use
  Company Number: SPI200700054

PATIENT
  Age: 64 Year
  Sex: Female

DRUGS (2)
  1. AMITIZA [Suspect]
     Dosage: 24 MCG, BID, ORAL
     Route: 048
     Dates: start: 20070201
  2. ZELNORM /0147031/ (TEGASEROD) [Concomitant]

REACTIONS (7)
  - BLOOD ALKALINE PHOSPHATASE INCREASED [None]
  - HAEMATOCRIT DECREASED [None]
  - HAEMOGLOBIN DECREASED [None]
  - INTESTINAL OBSTRUCTION [None]
  - NITRITE URINE PRESENT [None]
  - VOLVULUS [None]
  - WHITE BLOOD CELL COUNT INCREASED [None]
